FAERS Safety Report 6166960-6 (Version None)
Quarter: 2009Q2

REPORT INFORMATION
  Report Type: 
  Country: None (occurrence: None)
  Receive Date: 20090424
  Receipt Date: 20090413
  Transmission Date: 20091009
  Serious: Yes (Other)
  Sender: FDA-Public Use
  Company Number: US-PFIZER INC-2009173598

PATIENT
  Sex: Female

DRUGS (1)
  1. GEODON [Suspect]
     Dosage: 80 MG, 1X/DAY
     Dates: start: 20081101

REACTIONS (14)
  - ACTIVITIES OF DAILY LIVING IMPAIRED [None]
  - ANOREXIA [None]
  - ANXIETY [None]
  - DEPRESSION [None]
  - ELECTROCARDIOGRAM CHANGE [None]
  - INFLUENZA LIKE ILLNESS [None]
  - INITIAL INSOMNIA [None]
  - LOSS OF CONSCIOUSNESS [None]
  - MALAISE [None]
  - PANIC REACTION [None]
  - SOMNOLENCE [None]
  - TREMOR [None]
  - VOMITING [None]
  - WITHDRAWAL SYNDROME [None]
